FAERS Safety Report 5761243-8 (Version None)
Quarter: 2008Q2

REPORT INFORMATION
  Report Type: 
  Country: None (occurrence: None)
  Receive Date: 20080606
  Receipt Date: 20080528
  Transmission Date: 20081010
  Serious: Yes (Death, Hospitalization)
  Sender: FDA-Public Use
  Company Number: DE-AMGEN-UK274117

PATIENT
  Sex: Female

DRUGS (3)
  1. ARANESP [Suspect]
     Indication: ANAEMIA OF MALIGNANT DISEASE
     Route: 058
     Dates: start: 20080207, end: 20080326
  2. CLEXANE [Concomitant]
     Route: 065
     Dates: start: 20071130
  3. CARBOPLATIN [Concomitant]
     Route: 042
     Dates: start: 20071116, end: 20080326

REACTIONS (3)
  - LEUKOPENIA [None]
  - PNEUMONIA [None]
  - SEPTIC SHOCK [None]
